FAERS Safety Report 4551693-X (Version None)
Quarter: 2005Q1

REPORT INFORMATION
  Report Type: 
  Country: None (occurrence: None)
  Receive Date: 20050112
  Receipt Date: 20041229
  Transmission Date: 20050727
  Serious: Yes (Hospitalization)
  Sender: FDA-Public Use
  Company Number: 200416264BCC

PATIENT
  Age: 70 Year
  Sex: Female
  Weight: 77.1115 kg

DRUGS (6)
  1. ALEVE [Suspect]
     Indication: ANALGESIC EFFECT
     Dosage: 220 MG, ONCE, ORAL
     Route: 048
     Dates: start: 20041130
  2. ALEVE [Suspect]
     Indication: HEADACHE
     Dosage: 220 MG, ONCE, ORAL
     Route: 048
     Dates: start: 20041130
  3. ZOCOR [Concomitant]
  4. ALTACE [Concomitant]
  5. PAXIL [Concomitant]
  6. MENEST ^MONARCH^ [Concomitant]

REACTIONS (4)
  - CONVULSION [None]
  - FOAMING AT MOUTH [None]
  - LOSS OF CONSCIOUSNESS [None]
  - SCREAMING [None]
